FAERS Safety Report 7564331-9 (Version None)
Quarter: 2011Q2

REPORT INFORMATION
  Report Type: 
  Country: None (occurrence: None)
  Receive Date: 20110622
  Receipt Date: 20110609
  Transmission Date: 20111010
  Serious: Yes (Hospitalization, Other)
  Sender: FDA-Public Use
  Company Number: PHHY2011CA32013

PATIENT
  Sex: Male

DRUGS (3)
  1. SANDOSTATIN LAR [Suspect]
     Indication: ANGIODYSPLASIA
     Dosage: 30 MG, EVERY 4 WEEKS
     Route: 030
     Dates: start: 20091201
  2. ANTIBIOTICS [Concomitant]
     Dosage: UNK UKN, UNK
  3. LASIX [Concomitant]
     Dosage: UNK UKN, UNK

REACTIONS (4)
  - CARDIAC FAILURE [None]
  - PNEUMONIA [None]
  - HYPOTENSION [None]
  - PULMONARY OEDEMA [None]
